FAERS Safety Report 19359341 (Version 1)
Quarter: 2021Q2

REPORT INFORMATION
  Report Type: Spontaneous
  Country: CA (occurrence: CA)
  Receive Date: 20210602
  Receipt Date: 20210602
  Transmission Date: 20210717
  Serious: Yes (Life-Threatening, Hospitalization, Other)
  Sender: FDA-Public Use
  Company Number: CA-ORION CORPORATION ORION PHARMA-21_00014628

PATIENT
  Age: 58 Year
  Sex: Male

DRUGS (7)
  1. ROSUVASTATIN. [Concomitant]
     Active Substance: ROSUVASTATIN
     Route: 058
  2. ASA [Concomitant]
     Active Substance: ASPIRIN
     Route: 065
  3. METHOTREXATE (TRADE NAME UNKNOWN) [Suspect]
     Active Substance: METHOTREXATE
     Indication: RHEUMATOID ARTHRITIS
     Route: 048
  4. BISOPROLOL [Concomitant]
     Active Substance: BISOPROLOL
     Route: 065
  5. PERINDOPRIL [Concomitant]
     Active Substance: PERINDOPRIL
     Route: 065
  6. SPIRONOLACTONE. [Concomitant]
     Active Substance: SPIRONOLACTONE
     Route: 065
  7. COLCHICINE. [Concomitant]
     Active Substance: COLCHICINE
     Route: 065

REACTIONS (7)
  - Blister [Unknown]
  - Mucosal inflammation [Unknown]
  - Pancytopenia [Unknown]
  - Acute kidney injury [Unknown]
  - Biopsy bone marrow [Unknown]
  - Skin exfoliation [Unknown]
  - Toxicity to various agents [Unknown]
